FAERS Safety Report 7375155-X (Version None)
Quarter: 2011Q1

REPORT INFORMATION
  Report Type: 
  Country: None (occurrence: None)
  Receive Date: 20110325
  Receipt Date: 20110323
  Transmission Date: 20110831
  Serious: Yes (Other)
  Sender: FDA-Public Use
  Company Number: ES-PFIZER INC-2011029899

PATIENT
  Age: 28 Year
  Sex: Female

DRUGS (2)
  1. CHAMPIX [Suspect]
     Indication: SMOKING CESSATION THERAPY
     Dosage: UNK
     Dates: start: 20110202, end: 20110207
  2. CHAMPIX [Suspect]
     Dosage: 1 MG, 2X/DAY
     Dates: start: 20110208, end: 20110211

REACTIONS (7)
  - NAUSEA [None]
  - PNEUMONIA [None]
  - ASTHMA [None]
  - TONGUE DRY [None]
  - VOMITING [None]
  - DYSGEUSIA [None]
  - ABDOMINAL PAIN UPPER [None]
